FAERS Safety Report 22647472 (Version 6)
Quarter: 2025Q1

REPORT INFORMATION
  Report Type: Report from Study
  Country: DE (occurrence: DE)
  Receive Date: 20230628
  Receipt Date: 20250211
  Transmission Date: 20250408
  Serious: Yes (Other)
  Sender: TAKEDA
  Company Number: DE-TAKEDA-2023TUS062988

PATIENT
  Age: 39 Year
  Sex: Male

DRUGS (26)
  1. TEDUGLUTIDE [Suspect]
     Active Substance: TEDUGLUTIDE
     Indication: Short-bowel syndrome
     Dosage: 4 MILLIGRAM, QD
     Dates: start: 20150719, end: 20200909
  2. TEDUGLUTIDE [Suspect]
     Active Substance: TEDUGLUTIDE
     Dosage: 3.2 MILLIGRAM, QD
     Dates: start: 20200909, end: 20221205
  3. TEDUGLUTIDE [Suspect]
     Active Substance: TEDUGLUTIDE
  4. TEDUGLUTIDE [Suspect]
     Active Substance: TEDUGLUTIDE
  5. MIRTAZAPINE [Concomitant]
     Active Substance: MIRTAZAPINE
     Indication: Mechanical ileus
     Dosage: 15 MILLIGRAM, QD
     Dates: start: 202206
  6. TAZOBACTAM [Concomitant]
     Active Substance: TAZOBACTAM
     Indication: Device related infection
  7. CASPOFUNGIN [Concomitant]
     Active Substance: CASPOFUNGIN
     Indication: Device related infection
  8. PROKINETIC [Concomitant]
     Indication: Gastrointestinal motility disorder
  9. PANTOPRAZOLE SODIUM [Concomitant]
     Active Substance: PANTOPRAZOLE SODIUM
     Indication: Gastrooesophageal reflux disease
     Dosage: 40 MILLIGRAM, QD
     Dates: start: 2016, end: 202206
  10. PANTOPRAZOLE SODIUM [Concomitant]
     Active Substance: PANTOPRAZOLE SODIUM
     Dosage: 40 MILLIGRAM, BID
     Dates: start: 202206
  11. APLONA [Concomitant]
     Indication: Diarrhoea
  12. ZINC [Concomitant]
     Active Substance: ZINC
     Indication: Supplementation therapy
     Dosage: 25 MILLIGRAM, QD
     Dates: start: 201610
  13. SELENIUM [Concomitant]
     Active Substance: SELENIUM
     Indication: Supplementation therapy
     Dosage: 100 MICROGRAM, QD
     Dates: start: 201610
  14. SODIUM BICARBONATE [Concomitant]
     Active Substance: SODIUM BICARBONATE
     Indication: Metabolic acidosis
  15. ETOCOXIB [Concomitant]
     Indication: Serositis
     Dosage: 90 MILLIGRAM, QD
     Dates: start: 202107
  16. ETOCOXIB [Concomitant]
     Indication: Rheumatoid arthritis
  17. FERRIC MALTOL [Concomitant]
     Active Substance: FERRIC MALTOL
     Indication: Anaemia
     Dosage: 30 MILLIGRAM, BID
     Dates: start: 202003
  18. SODIUM BICARBONATE [Concomitant]
     Active Substance: SODIUM BICARBONATE
     Indication: Metabolic acidosis
  19. MAGNESIUM [Concomitant]
     Active Substance: MAGNESIUM
     Indication: Supplementation therapy
     Dosage: UNK UNK, QD
     Dates: start: 2016
  20. FOLIC ACID [Concomitant]
     Active Substance: FOLIC ACID
     Indication: Supplementation therapy
     Dosage: 5 MILLIGRAM, QOD
     Dates: start: 201707
  21. PSYLLIUM [Concomitant]
     Active Substance: PLANTAGO SEED
     Indication: Diarrhoea
     Dosage: UNK UNK, BID
     Dates: start: 202109
  22. LACTULOSE [Concomitant]
     Active Substance: LACTULOSE
     Indication: Prophylaxis
  23. MELATONIN [Concomitant]
     Active Substance: MELATONIN
     Dosage: 4 MILLIGRAM, QD
     Dates: start: 202206
  24. ENOXAPARIN SODIUM [Concomitant]
     Active Substance: ENOXAPARIN SODIUM
     Indication: Thrombosis
     Dosage: 20 MILLIGRAM, QD
     Dates: start: 202206
  25. GASTROGRAFIN [Concomitant]
     Active Substance: DIATRIZOATE MEGLUMINE\DIATRIZOATE SODIUM
     Indication: Prophylaxis
     Dosage: 20 MILLIGRAM, QID
     Dates: start: 202206
  26. LOPERAMIDE [Concomitant]
     Active Substance: LOPERAMIDE
     Indication: Diarrhoea
     Dosage: UNK UNK, TID
     Dates: start: 202206

REACTIONS (3)
  - Hypokalaemia [Not Recovered/Not Resolved]
  - Hypophosphataemia [Not Recovered/Not Resolved]
  - Fatigue [Recovered/Resolved]

NARRATIVE: CASE EVENT DATE: 20230501
